FAERS Safety Report 14747407 (Version 1)
Quarter: 2018Q2

REPORT INFORMATION
  Report Type: Spontaneous
  Country: AU (occurrence: AU)
  Receive Date: 20180411
  Receipt Date: 20180411
  Transmission Date: 20180711
  Serious: Yes (Death)
  Sender: FDA-Public Use
  Company Number: AU-SA-2018SA099229

PATIENT
  Sex: Male

DRUGS (2)
  1. MORPHINE SALT NOT SPECIFIED [Suspect]
     Active Substance: MORPHINE
     Route: 065
  2. DOXYLAMINE SUCCINATE. [Suspect]
     Active Substance: DOXYLAMINE SUCCINATE
     Route: 065

REACTIONS (1)
  - Toxicity to various agents [Fatal]
